FAERS Safety Report 24094368 (Version 2)
Quarter: 2024Q3

REPORT INFORMATION
  Report Type: Spontaneous
  Country: US (occurrence: US)
  Receive Date: 20240716
  Receipt Date: 20240805
  Transmission Date: 20241017
  Serious: Yes (Life-Threatening, Hospitalization)
  Sender: TEVA
  Company Number: US-TEVA-VS-3218600

PATIENT
  Age: 22 Year
  Sex: Male

DRUGS (3)
  1. TRETINOIN [Suspect]
     Active Substance: TRETINOIN
     Indication: Acute promyelocytic leukaemia
     Route: 065
  2. ARSENIC [Suspect]
     Active Substance: ARSENIC
     Indication: Acute promyelocytic leukaemia
     Route: 065
  3. GEMTUZUMAB OZOGAMICIN [Suspect]
     Active Substance: GEMTUZUMAB OZOGAMICIN
     Indication: Acute promyelocytic leukaemia
     Route: 065

REACTIONS (12)
  - Differentiation syndrome [Unknown]
  - Multiple organ dysfunction syndrome [Unknown]
  - Encephalopathy [Unknown]
  - Shock [Unknown]
  - Venoocclusive liver disease [Unknown]
  - Venoocclusive disease [Unknown]
  - Acute hepatic failure [Unknown]
  - Septic shock [Unknown]
  - Acute respiratory distress syndrome [Recovering/Resolving]
  - Brain oedema [Unknown]
  - Renal failure [Unknown]
  - Toxic encephalopathy [Recovering/Resolving]
